FAERS Safety Report 5977691-7 (Version None)
Quarter: 2008Q4

REPORT INFORMATION
  Report Type: 
  Country: None (occurrence: None)
  Receive Date: 20081203
  Receipt Date: 20081125
  Transmission Date: 20090506
  Serious: Yes (Life-Threatening, Hospitalization, Disabling)
  Sender: FDA-Public Use
  Company Number: FR-ROCHE-342516

PATIENT
  Age: 15 Month
  Sex: Male
  Weight: 11 kg

DRUGS (5)
  1. ROCEPHIN [Suspect]
     Dosage: FORM REPORTED AS IM INJECTABLE AMPOULE
     Route: 042
     Dates: start: 20030116, end: 20030116
  2. BACTRIM [Concomitant]
     Indication: PROPHYLAXIS
     Dates: start: 20021101
  3. AUGMENTIN '125' [Concomitant]
     Indication: OTITIS MEDIA ACUTE
     Dates: start: 20030103, end: 20030113
  4. ADVIL [Concomitant]
     Dates: start: 20030115
  5. DOLIPRANE [Concomitant]
     Dates: start: 20030115

REACTIONS (5)
  - BRADYCARDIA [None]
  - CONVULSION [None]
  - CYANOSIS [None]
  - EYE DISORDER [None]
  - MALAISE [None]
